FAERS Safety Report 8610280-4 (Version None)
Quarter: 2012Q3

REPORT INFORMATION
  Report Type: 
  Country: None (occurrence: None)
  Receive Date: 20120810
  Receipt Date: 20120810
  Transmission Date: 20120928
  Serious: Yes (Disabling, Other)
  Sender: FDA-Public Use
  Company Number: None

PATIENT
  Sex: Male
  Weight: 106.5953 kg

DRUGS (1)
  1. LYRICA [Suspect]

REACTIONS (12)
  - DYSPHEMIA [None]
  - PERSONALITY CHANGE [None]
  - STRESS [None]
  - TACHYPHRENIA [None]
  - THINKING ABNORMAL [None]
  - ANXIETY [None]
  - FEAR [None]
  - EUPHORIC MOOD [None]
  - FEELING OF DESPAIR [None]
  - ABNORMAL BEHAVIOUR [None]
  - CONFUSIONAL STATE [None]
  - DEPRESSION [None]
